FAERS Safety Report 9926134 (Version 2)
Quarter: 2014Q1

REPORT INFORMATION
  Report Type: Spontaneous
  Country: US (occurrence: US)
  Receive Date: 20140226
  Receipt Date: 20140314
  Transmission Date: 20141002
  Serious: No
  Sender: FDA-Public Use
  Company Number: US-009507513-1402USA011674

PATIENT
  Sex: Female
  Weight: 129.25 kg

DRUGS (8)
  1. IMPLANON [Suspect]
     Indication: CONTRACEPTION
     Dosage: 1 UNK, UNK
     Route: 059
  2. IMPLANON [Suspect]
     Dosage: UNK
     Route: 059
     Dates: start: 20110504, end: 20140224
  3. CELEXA [Concomitant]
  4. GEODON [Concomitant]
  5. REMERON [Concomitant]
     Dosage: UNK
     Route: 048
  6. TRILEPTAL [Concomitant]
  7. RANITIDINE [Concomitant]
  8. VIVARIN [Concomitant]

REACTIONS (2)
  - Migraine [Unknown]
  - Medical device complication [Recovered/Resolved]
